FAERS Safety Report 4323332-4 (Version None)
Quarter: 2004Q1

REPORT INFORMATION
  Report Type: 
  Country: None (occurrence: None)
  Receive Date: 20040322
  Receipt Date: 20031014
  Transmission Date: 20041129
  Serious: Yes (Disabling)
  Sender: FDA-Public Use
  Company Number: S04-FRA-01097-01

PATIENT
  Age: 68 Year
  Sex: Male

DRUGS (6)
  1. EBIXA   /DEN/ (MEMANTINE HYDROCHLORIDE0 [Suspect]
     Indication: DEMENTIA
     Dosage: 20 MG QD PO
     Route: 048
     Dates: start: 20030803, end: 20030922
  2. ZYPREXA [Suspect]
  3. PERINDOPRIL [Concomitant]
  4. ASPIRIN [Concomitant]
  5. TELMISARTAN [Concomitant]
  6. ALBUTEROL SULFATE [Concomitant]

REACTIONS (2)
  - DRUG INTERACTION [None]
  - OEDEMA PERIPHERAL [None]
